FAERS Safety Report 5371841-1 (Version None)
Quarter: 2007Q2

REPORT INFORMATION
  Report Type: 
  Country: None (occurrence: None)
  Receive Date: 20070627
  Receipt Date: 20070620
  Transmission Date: 20071010
  Serious: Yes (Hospitalization)
  Sender: FDA-Public Use
  Company Number: US-JNJFOC-20070602293

PATIENT
  Sex: Male
  Weight: 64.41 kg

DRUGS (3)
  1. GALANTAMINE HYDROBROMIDE [Suspect]
     Indication: COGNITIVE DISORDER
     Route: 048
  2. DEPAKOTE [Concomitant]
     Dosage: AT BEDTIME
  3. ZYPREXA [Concomitant]
     Dosage: AT BEDTIME

REACTIONS (2)
  - MANIA [None]
  - PSYCHOTIC DISORDER [None]
